FAERS Safety Report 10576486 (Version 1)
Quarter: 2014Q4

REPORT INFORMATION
  Report Type: Spontaneous
  Country: US (occurrence: None)
  Receive Date: 20141110
  Receipt Date: 20141110
  Transmission Date: 20150529
  Serious: Yes (Life-Threatening)
  Sender: FDA-Public Use
  Company Number: None

PATIENT
  Age: 63 Year
  Sex: Male
  Weight: 99.79 kg

DRUGS (1)
  1. VANCOMYCIN [Suspect]
     Active Substance: VANCOMYCIN
     Indication: BACTERIAL INFECTION
     Dosage: INTO A VEIN
     Route: 041
     Dates: start: 20120228, end: 20120320

REACTIONS (3)
  - Renal impairment [None]
  - Hypersensitivity [None]
  - Pain [None]

NARRATIVE: CASE EVENT DATE: 20120325
